FAERS Safety Report 20201703 (Version 2)
Quarter: 2022Q1

REPORT INFORMATION
  Report Type: Spontaneous
  Country: PL (occurrence: PL)
  Receive Date: 20211217
  Receipt Date: 20220221
  Transmission Date: 20220423
  Serious: Yes (Life-Threatening, Hospitalization, Other)
  Sender: FDA-Public Use
  Company Number: None

PATIENT
  Age: 74 Year
  Sex: Male

DRUGS (19)
  1. OMEPRAZOLE [Interacting]
     Active Substance: OMEPRAZOLE
     Indication: Product used for unknown indication
     Dosage: 40 MILLIGRAM, QD
     Route: 048
  2. ACETAMINOPHEN [Suspect]
     Active Substance: ACETAMINOPHEN
     Indication: Headache
  3. ACETAMINOPHEN [Suspect]
     Active Substance: ACETAMINOPHEN
  4. AGOMELATINE [Interacting]
     Active Substance: AGOMELATINE
     Indication: Anhedonia
     Dosage: AT A BEDTIME
  5. KETOPROFEN [Suspect]
     Active Substance: KETOPROFEN
     Indication: Headache
  6. KETOPROFEN [Suspect]
     Active Substance: KETOPROFEN
  7. RIVAROXABAN [Suspect]
     Active Substance: RIVAROXABAN
     Indication: Atrial fibrillation
     Dosage: 20 MILLIGRAM, QD
  8. AGOMELATINE [Interacting]
     Active Substance: AGOMELATINE
     Indication: Depression
     Dosage: 25 MG/DAY AT BEDTIME
  9. AMIODARONE [Interacting]
     Active Substance: AMIODARONE
     Indication: Atrial fibrillation
     Route: 042
  10. IBUPROFEN [Interacting]
     Active Substance: IBUPROFEN
     Indication: Headache
  11. IBUPROFEN [Interacting]
     Active Substance: IBUPROFEN
  12. POTASSIUM CHLORIDE [Suspect]
     Active Substance: POTASSIUM CHLORIDE
     Route: 042
  13. POTASSIUM CHLORIDE [Suspect]
     Active Substance: POTASSIUM CHLORIDE
     Route: 042
  14. METAMIZOLE [Suspect]
     Active Substance: METAMIZOLE
     Indication: Headache
  15. METAMIZOLE [Suspect]
     Active Substance: METAMIZOLE
  16. PROPRANOLOL [Interacting]
     Active Substance: PROPRANOLOL HYDROCHLORIDE
     Indication: Atrial fibrillation
     Dosage: 2 X 10 MG/DAY
  17. CIPROFLOXACIN [Interacting]
     Active Substance: CIPROFLOXACIN
     Indication: Urinary tract infection
     Dosage: 500 MG BEFORE BED
  18. METOPROLOL [Concomitant]
     Active Substance: METOPROLOL
     Dosage: INITIALLY USED INTRAVENOUSLY - THEN ORALLY
  19. METOPROLOL [Concomitant]
     Active Substance: METOPROLOL
     Dosage: INITIALLY USED INTRAVENOUSLY - THEN ORALLY

REACTIONS (15)
  - Product use in unapproved indication [Recovered/Resolved]
  - Diarrhoea [Recovered/Resolved]
  - Hyperhidrosis [Recovered/Resolved]
  - Abdominal pain upper [Recovered/Resolved]
  - Abdominal pain [Recovered/Resolved]
  - Pain [Recovered/Resolved]
  - Anhedonia [Recovered/Resolved]
  - Depression [Recovered/Resolved]
  - Hyperhidrosis [Recovered/Resolved]
  - Headache [Recovered/Resolved]
  - Headache [Recovered/Resolved]
  - Tachycardia [Recovered/Resolved]
  - Asthenia [Recovered/Resolved]
  - Drug ineffective [Unknown]
  - Drug interaction [Recovered/Resolved]

NARRATIVE: CASE EVENT DATE: 20190101
